APPROVED DRUG PRODUCT: GEMCITABINE HYDROCHLORIDE
Active Ingredient: GEMCITABINE HYDROCHLORIDE
Strength: 1GM/10ML (100MG/ML)
Dosage Form/Route: SOLUTION;INTRAVENOUS
Application: N209604 | Product #002
Applicant: ACCORD HEALTHCARE INC
Approved: Aug 3, 2017 | RLD: Yes | RS: Yes | Type: RX